FAERS Safety Report 9641653 (Version 2)
Quarter: 2013Q4

REPORT INFORMATION
  Report Type: Report from Study
  Country: US (occurrence: US)
  Receive Date: 20131023
  Receipt Date: 20131023
  Transmission Date: 20140711
  Serious: Yes (Hospitalization)
  Sender: FDA-Public Use
  Company Number: US-TAKEDA-TPA2013A07609

PATIENT
  Age: 49 Year
  Sex: Male
  Weight: 103.5 kg

DRUGS (9)
  1. BLINDED ESCITALOPRAM OXALATE [Suspect]
     Indication: MAJOR DEPRESSION
     Dosage: UNK, QD
     Route: 048
     Dates: start: 20130514, end: 20130708
  2. BLINDED VORTIOXETINE [Suspect]
     Indication: MAJOR DEPRESSION
     Dosage: UNK, QD
     Route: 048
     Dates: start: 20130514, end: 20130708
  3. BLINDED ESCITALOPRAM OXALATE [Suspect]
     Dosage: UNK, QD
     Route: 048
     Dates: start: 20130709, end: 20130715
  4. BLINDED VORTIOXETINE [Suspect]
     Dosage: UNK, QD
     Route: 048
     Dates: start: 20130709, end: 20130715
  5. PARIET [Concomitant]
     Indication: GASTROOESOPHAGEAL REFLUX DISEASE
     Dosage: 20 MG, QD
     Route: 048
     Dates: start: 2008
  6. APO-QUININE [Concomitant]
     Indication: MUSCLE SPASMS
     Dosage: 200 MG, QD
     Route: 048
     Dates: start: 2007
  7. TELMISARTAN [Concomitant]
     Indication: HYPERTENSION
     Dosage: 12.5 MG, QD
     Route: 048
     Dates: start: 1985
  8. CIPRALEX [Concomitant]
     Indication: MAJOR DEPRESSION
     Dosage: 10 MG, PRN
     Route: 048
     Dates: start: 20130715, end: 20130722
  9. CIPRALEX [Concomitant]
     Dosage: 20 MG, PRN
     Route: 048
     Dates: start: 20130723, end: 20130808

REACTIONS (2)
  - Depression [Recovering/Resolving]
  - Anxiety [Recovering/Resolving]
